FAERS Safety Report 6942332-9 (Version None)
Quarter: 2010Q3

REPORT INFORMATION
  Report Type: 
  Country: None (occurrence: None)
  Receive Date: 20100826
  Receipt Date: 20100823
  Transmission Date: 20110219
  Serious: Yes (Congenital Anomaly, Other)
  Sender: FDA-Public Use
  Company Number: MX-ROXANE LABORATORIES, INC.-2010-RO-01128RO

PATIENT
  Sex: Male
  Weight: 2 kg

DRUGS (4)
  1. METHOTREXATE [Suspect]
     Indication: DRUG EXPOSURE DURING PREGNANCY
     Dosage: 5 MG
     Route: 064
  2. AMPICILLIN SODIUM [Suspect]
     Indication: DRUG EXPOSURE DURING PREGNANCY
     Route: 064
  3. ACETAMINOPHEN [Suspect]
     Indication: DRUG EXPOSURE DURING PREGNANCY
     Route: 064
  4. FOLIC ACID [Suspect]
     Indication: DRUG EXPOSURE DURING PREGNANCY
     Route: 064

REACTIONS (9)
  - APGAR SCORE LOW [None]
  - FOETAL DISTRESS SYNDROME [None]
  - GRAND MAL CONVULSION [None]
  - HOLOPROSENCEPHALY [None]
  - HYDRONEPHROSIS [None]
  - MATERNAL DRUGS AFFECTING FOETUS [None]
  - PENIS DEVIATION [None]
  - PREMATURE BABY [None]
  - VESICOURETERIC REFLUX [None]
